FAERS Safety Report 14288198 (Version 4)
Quarter: 2018Q1

REPORT INFORMATION
  Report Type: Spontaneous
  Country: DE (occurrence: DE)
  Receive Date: 20171215
  Receipt Date: 20180306
  Transmission Date: 20180509
  Serious: Yes (Other)
  Sender: FDA-Public Use
  Company Number: DE-009507513-1712DEU002887

PATIENT
  Age: 20 Year
  Sex: Female
  Weight: 59 kg

DRUGS (2)
  1. CEFTAZIDIM KABI [Concomitant]
     Indication: INFECTION
     Dosage: 400 MG, Q8H
     Route: 042
     Dates: start: 201711, end: 20171127
  2. ZIENAM 500 [Suspect]
     Active Substance: CILASTATIN SODIUM\IMIPENEM
     Indication: INFECTION
     Dosage: 3X DAILY 1 G IMIPENEM
     Route: 042
     Dates: start: 201711, end: 20171127

REACTIONS (6)
  - Nausea [Recovered/Resolved]
  - Vomiting [Recovered/Resolved]
  - Loss of consciousness [Recovered/Resolved]
  - Paraesthesia [Recovered/Resolved]
  - Seizure [Recovered/Resolved]
  - Headache [Recovered/Resolved]

NARRATIVE: CASE EVENT DATE: 20171127
